FAERS Safety Report 8627925 (Version 2)
Quarter: 2013Q3

REPORT INFORMATION
  Report Type: Spontaneous
  Country: US (occurrence: US)
  Receive Date: 20120621
  Receipt Date: 20130828
  Transmission Date: 20140515
  Serious: Yes (Hospitalization)
  Sender: FDA-Public Use
  Company Number: US-GENZYME-CERZ-1002536

PATIENT
  Sex: 0

DRUGS (1)
  1. CEREZYME [Suspect]
     Indication: GAUCHER^S DISEASE
     Dosage: 100 U/KG, Q2W
     Route: 042
     Dates: start: 200302

REACTIONS (3)
  - Rib fracture [Recovered/Resolved]
  - Pulmonary haemorrhage [Recovered/Resolved]
  - Fall [Recovered/Resolved]
